FAERS Safety Report 6838969-8 (Version None)
Quarter: 2010Q3

REPORT INFORMATION
  Report Type: 
  Country: None (occurrence: None)
  Receive Date: 20100713
  Receipt Date: 20071020
  Transmission Date: 20110219
  Serious: Yes (Other)
  Sender: FDA-Public Use
  Company Number: US-PFIZER INC-2007040101

PATIENT
  Sex: Female
  Weight: 57.6 kg

DRUGS (7)
  1. CHANTIX [Suspect]
     Indication: SMOKING CESSATION THERAPY
     Dates: start: 20070501
  2. KALETRA [Concomitant]
     Indication: HIV INFECTION
     Dosage: 50/200
  3. TRUVADA [Concomitant]
     Indication: HIV INFECTION
  4. ZANTAC [Concomitant]
     Indication: DYSPEPSIA
     Dosage: 150
  5. LORCET-HD [Concomitant]
     Dosage: 10/650,ONE EVERY 6 HOURS
  6. SOMA [Concomitant]
     Dosage: ONE EVERY 8 HOURS AS NEEDED
  7. COMBIVENT [Concomitant]

REACTIONS (1)
  - VERTIGO [None]
